FAERS Safety Report 12985312 (Version 1)
Quarter: 2016Q4

REPORT INFORMATION
  Report Type: Spontaneous
  Country: FR (occurrence: FR)
  Receive Date: 20161130
  Receipt Date: 20161130
  Transmission Date: 20170207
  Serious: Yes (Hospitalization)
  Sender: FDA-Public Use
  Company Number: FR-CONCORDIA PHARMACEUTICALS INC.-GSH201611-006051

PATIENT
  Age: 37 Year
  Sex: Female

DRUGS (9)
  1. METHOTREXATE. [Suspect]
     Active Substance: METHOTREXATE
     Route: 065
     Dates: start: 20161025
  2. PLAQUENIL [Suspect]
     Active Substance: HYDROXYCHLOROQUINE SULFATE
     Indication: LUPUS-LIKE SYNDROME
     Route: 048
     Dates: start: 2009
  3. LOCAPRED [Suspect]
     Active Substance: DESONIDE
     Indication: LIP INFECTION
     Route: 003
     Dates: start: 201003, end: 201004
  4. LOCAPRED [Suspect]
     Active Substance: DESONIDE
     Route: 003
     Dates: start: 201610
  5. UVEDOSE [Concomitant]
     Active Substance: CHOLECALCIFEROL
  6. ARTELAC [Concomitant]
     Active Substance: HYPROMELLOSES
  7. FOLIC ACID. [Concomitant]
     Active Substance: FOLIC ACID
  8. LEXOMIL [Concomitant]
     Active Substance: BROMAZEPAM
  9. METHOTREXATE. [Suspect]
     Active Substance: METHOTREXATE
     Indication: LUPUS-LIKE SYNDROME
     Route: 048
     Dates: start: 2012, end: 20161010

REACTIONS (1)
  - Skin infection [Recovering/Resolving]

NARRATIVE: CASE EVENT DATE: 20161002
